FAERS Safety Report 10380720 (Version 1)
Quarter: 2014Q3

REPORT INFORMATION
  Report Type: Spontaneous
  Country: US (occurrence: None)
  Receive Date: 20140812
  Receipt Date: 20140812
  Transmission Date: 20150326
  Serious: No
  Sender: FDA-Public Use
  Company Number: None

PATIENT
  Age: 58 Year
  Sex: Female

DRUGS (1)
  1. INH [Suspect]
     Active Substance: ISONIAZID
     Dates: start: 20130424, end: 20130628

REACTIONS (5)
  - Abdominal pain [None]
  - Drug-induced liver injury [None]
  - Nausea [None]
  - Decreased appetite [None]
  - Hepatotoxicity [None]

NARRATIVE: CASE EVENT DATE: 20130626
